FAERS Safety Report 10452061 (Version 1)
Quarter: 2014Q3

REPORT INFORMATION
  Report Type: Spontaneous
  Country: US (occurrence: None)
  Receive Date: 20140912
  Receipt Date: 20140912
  Transmission Date: 20150326
  Serious: Yes (Death)
  Sender: FDA-Public Use
  Company Number: None

PATIENT
  Age: 31 Year
  Sex: Female
  Weight: 51.6 kg

DRUGS (17)
  1. DOXYCYCLINE. [Concomitant]
     Active Substance: DOXYCYCLINE
  2. MARINOL [Concomitant]
     Active Substance: DRONABINOL
  3. MEDROXYPROGESTERONE [Concomitant]
     Active Substance: MEDROXYPROGESTERONE
  4. BACLOFEN. [Concomitant]
     Active Substance: BACLOFEN
  5. CHLORHEXIDINE (PERIDEX) [Concomitant]
  6. ONDANSETRON ODT [Concomitant]
     Active Substance: ONDANSETRON
  7. CALCIUM ACETATE. [Concomitant]
     Active Substance: CALCIUM ACETATE
  8. GABAPENTIN. [Concomitant]
     Active Substance: GABAPENTIN
  9. METOCLOPRAMIDE HCL [Concomitant]
     Active Substance: METOCLOPRAMIDE HYDROCHLORIDE
  10. CLINDAMYCIN [Concomitant]
     Active Substance: CLINDAMYCIN\CLINDAMYCIN PHOSPHATE
  11. NEXAVAR [Suspect]
     Active Substance: SORAFENIB
     Indication: ACUTE MYELOID LEUKAEMIA
     Dosage: 2 PILLS
     Route: 048
     Dates: start: 20140827, end: 20140904
  12. MAGNESIUM OXIDE. [Concomitant]
     Active Substance: MAGNESIUM OXIDE
  13. ACYCLOVIR. [Concomitant]
     Active Substance: ACYCLOVIR
  14. MORPHINE SULFATE EXTENDED-RELEASE [Concomitant]
     Active Substance: MORPHINE SULFATE
  15. ALBUTEROL. [Concomitant]
     Active Substance: ALBUTEROL
  16. PROCHLORPERAZINE. [Concomitant]
     Active Substance: PROCHLORPERAZINE
  17. HYDROMORPHINE [Concomitant]
     Active Substance: HYDROMORPHONE

REACTIONS (2)
  - Malignant neoplasm progression [None]
  - Leukaemia recurrent [None]

NARRATIVE: CASE EVENT DATE: 20140908
